FAERS Safety Report 21073257 (Version 2)
Quarter: 2022Q3

REPORT INFORMATION
  Report Type: Report from Study
  Country: US (occurrence: US)
  Receive Date: 20220712
  Receipt Date: 20220929
  Transmission Date: 20221026
  Serious: Yes (Other)
  Sender: FDA-Public Use
  Company Number: US-ABBVIE-21K-163-4094566-00

PATIENT
  Sex: Female

DRUGS (8)
  1. RINVOQ [Suspect]
     Active Substance: UPADACITINIB
     Indication: Rheumatoid arthritis
     Route: 048
  2. RINVOQ [Suspect]
     Active Substance: UPADACITINIB
     Indication: Rheumatoid arthritis
     Route: 048
  3. RINVOQ [Suspect]
     Active Substance: UPADACITINIB
     Indication: Rheumatoid arthritis
     Route: 048
  4. RINVOQ [Suspect]
     Active Substance: UPADACITINIB
     Indication: Rheumatoid arthritis
     Route: 048
     Dates: start: 20210722
  5. RINVOQ [Suspect]
     Active Substance: UPADACITINIB
     Indication: Rheumatoid arthritis
     Route: 048
  6. MODERNA COVID-19 VACCINE [Suspect]
     Active Substance: ELASOMERAN
     Indication: COVID-19 immunisation
     Dosage: TIME INTERVAL: 1 TOTAL: FIRST DOSE
     Route: 030
     Dates: start: 20210901, end: 20210901
  7. MODERNA COVID-19 VACCINE [Suspect]
     Active Substance: ELASOMERAN
     Indication: COVID-19 immunisation
     Dosage: TIME INTERVAL: 1 TOTAL: SECOND DOSE
     Route: 030
     Dates: start: 20211001, end: 20211001
  8. MODERNA COVID-19 VACCINE [Suspect]
     Active Substance: ELASOMERAN
     Indication: COVID-19 immunisation
     Dosage: TIME INTERVAL: 1 TOTAL: MODERNA BOOSTER
     Route: 030
     Dates: start: 20211101, end: 20211101

REACTIONS (19)
  - Cataract [Not Recovered/Not Resolved]
  - Insomnia [Unknown]
  - Mobility decreased [Not Recovered/Not Resolved]
  - Pain [Not Recovered/Not Resolved]
  - Depression [Not Recovered/Not Resolved]
  - Dysphagia [Not Recovered/Not Resolved]
  - Pain [Not Recovered/Not Resolved]
  - Osteoporosis [Unknown]
  - Headache [Unknown]
  - Rheumatoid arthritis [Not Recovered/Not Resolved]
  - Rash pruritic [Unknown]
  - Osteoarthritis [Not Recovered/Not Resolved]
  - Fibromyalgia [Not Recovered/Not Resolved]
  - Fatigue [Unknown]
  - Carpal tunnel syndrome [Not Recovered/Not Resolved]
  - Ankle fracture [Not Recovered/Not Resolved]
  - Intervertebral disc protrusion [Not Recovered/Not Resolved]
  - Ligament rupture [Unknown]
  - Spinal stenosis [Not Recovered/Not Resolved]
